FAERS Safety Report 6893000-3 (Version None)
Quarter: 2010Q3

REPORT INFORMATION
  Report Type: 
  Country: None (occurrence: None)
  Receive Date: 20100731
  Receipt Date: 20081226
  Transmission Date: 20110219
  Serious: No
  Sender: FDA-Public Use
  Company Number: US-PFIZER INC-2008096832

PATIENT
  Sex: Male
  Weight: 80.9 kg

DRUGS (7)
  1. GABAPENTIN [Suspect]
     Indication: BACK PAIN
     Dosage: 300 MG, 3X/DAY
     Dates: start: 20080401
  2. MELOXICAM [Concomitant]
  3. LEXAPRO [Concomitant]
  4. ZOLPIDEM [Concomitant]
  5. ULTRAM [Concomitant]
  6. QUININE [Concomitant]
  7. XALATAN [Concomitant]

REACTIONS (2)
  - DRUG DOSE OMISSION [None]
  - HEADACHE [None]
